FAERS Safety Report 10303237 (Version 1)
Quarter: 2014Q3

REPORT INFORMATION
  Report Type: Spontaneous
  Country: US (occurrence: US)
  Receive Date: 20140714
  Receipt Date: 20140714
  Transmission Date: 20150326
  Serious: Yes (Other)
  Sender: FDA-Public Use
  Company Number: US-ASTELLAS-2014US006248

PATIENT
  Sex: Female

DRUGS (1)
  1. MYRBETRIQ [Suspect]
     Active Substance: MIRABEGRON
     Indication: POLLAKIURIA
     Route: 065
     Dates: start: 201405

REACTIONS (4)
  - Abdominal discomfort [Unknown]
  - Blood pressure increased [Unknown]
  - Intentional product misuse [Unknown]
  - Urinary hesitation [Unknown]

NARRATIVE: CASE EVENT DATE: 20140529
